FAERS Safety Report 6078425-0 (Version None)
Quarter: 2009Q1

REPORT INFORMATION
  Report Type: 
  Country: None (occurrence: None)
  Receive Date: 20090212
  Receipt Date: 20090116
  Transmission Date: 20090719
  Serious: No
  Sender: FDA-Public Use
  Company Number: IMP_04237_2009

PATIENT
  Sex: Female

DRUGS (1)
  1. BUDEPRION 300 MG (NOT SPECIFIED) [Suspect]
     Indication: DRUG USE FOR UNKNOWN INDICATION
     Dosage: ((FREQUENCY UNKNOWN) ORAL)
     Route: 048

REACTIONS (7)
  - ADVERSE REACTION [None]
  - ASTHENIA [None]
  - DYSPNOEA [None]
  - FATIGUE [None]
  - IMPAIRED WORK ABILITY [None]
  - PALPITATIONS [None]
  - QUALITY OF LIFE DECREASED [None]
